FAERS Safety Report 6366319-2 (Version None)
Quarter: 2009Q3

REPORT INFORMATION
  Report Type: 
  Country: None (occurrence: None)
  Receive Date: 20090921
  Receipt Date: 20090914
  Transmission Date: 20100115
  Serious: Yes (Other)
  Sender: FDA-Public Use
  Company Number: US-JNJFOC-20090904724

PATIENT
  Sex: Female
  Weight: 61.24 kg

DRUGS (14)
  1. IMODIUM A-D [Suspect]
     Route: 048
  2. IMODIUM A-D [Suspect]
     Indication: DIARRHOEA
     Route: 048
  3. PEPCID COMPLETE MINT CHEWABLE TABLET [Suspect]
     Route: 065
  4. PEPCID COMPLETE MINT CHEWABLE TABLET [Suspect]
     Indication: DYSPEPSIA
     Route: 065
  5. LOVASTATIN [Concomitant]
     Indication: BLOOD CHOLESTEROL
     Route: 065
  6. LEVOTHYROXINE SODIUM [Concomitant]
     Indication: THYROID DISORDER
     Route: 065
  7. ATENOLOL [Concomitant]
     Route: 065
  8. NAPROXEN [Concomitant]
     Route: 065
  9. VITAMIN D [Concomitant]
     Route: 065
  10. ANTI-DIARRHEAL MEDICATION [Concomitant]
     Indication: FREQUENT BOWEL MOVEMENTS
     Route: 065
  11. FOLGARD RX [Concomitant]
     Route: 065
  12. ASCORBIC ACID [Concomitant]
     Route: 065
  13. FISH OIL [Concomitant]
     Route: 065
  14. UNSPECIFIED EYE MEDICATION [Concomitant]
     Route: 065

REACTIONS (3)
  - ACCIDENTAL EXPOSURE [None]
  - INCORRECT DOSE ADMINISTERED [None]
  - RECTAL HAEMORRHAGE [None]
